FAERS Safety Report 16318803 (Version 1)
Quarter: 2019Q2

REPORT INFORMATION
  Report Type: Spontaneous
  Country: US (occurrence: US)
  Receive Date: 20190516
  Receipt Date: 20190516
  Transmission Date: 20190711
  Serious: Yes (Other)
  Sender: FDA-Public Use
  Company Number: US-ACCORD-127613

PATIENT
  Age: 76 Year
  Sex: Male

DRUGS (3)
  1. QUETIAPINE. [Suspect]
     Active Substance: QUETIAPINE
     Indication: NEUROPSYCHIATRIC SYMPTOMS
     Dosage: Q AM (MORNING)
  2. CARBIDOPA/LEVODOPA [Concomitant]
     Dosage: LEVODOPA/CARBIDOPA (LD/CD) 25/100, 2 TAB TID.
  3. RISPERIDONE. [Suspect]
     Active Substance: RISPERIDONE
     Indication: AGGRESSION

REACTIONS (5)
  - Unresponsive to stimuli [Unknown]
  - Delirium [Recovering/Resolving]
  - Somnolence [Unknown]
  - Depressed level of consciousness [Recovering/Resolving]
  - Cogwheel rigidity [Recovering/Resolving]
